FAERS Safety Report 13466436 (Version 1)
Quarter: 2017Q2

REPORT INFORMATION
  Report Type: Spontaneous
  Country: US (occurrence: US)
  Receive Date: 20170421
  Receipt Date: 20170421
  Transmission Date: 20170830
  Serious: Yes (Hospitalization, Disabling)
  Sender: FDA-Public Use
  Company Number: None

PATIENT
  Age: 55 Year
  Sex: Female
  Weight: 59.47 kg

DRUGS (10)
  1. DEXILANT [Concomitant]
     Active Substance: DEXLANSOPRAZOLE
  2. PROLIA [Suspect]
     Active Substance: DENOSUMAB
     Indication: OSTEOPOROSIS
     Dates: start: 201505, end: 201605
  3. ADVIL [Concomitant]
     Active Substance: IBUPROFEN
  4. VITAMIN D [Concomitant]
     Active Substance: CHOLECALCIFEROL
  5. LORAZEPAM. [Concomitant]
     Active Substance: LORAZEPAM
  6. PREDNISONE. [Concomitant]
     Active Substance: PREDNISONE
  7. PLAQUENIL (GENERIC) [Concomitant]
  8. APRIPRAZOLE [Concomitant]
     Active Substance: ARIPIPRAZOLE
  9. VIIBRYD [Concomitant]
     Active Substance: VILAZODONE HYDROCHLORIDE
  10. MODAFINIL. [Concomitant]
     Active Substance: MODAFINIL

REACTIONS (2)
  - Sciatica [None]
  - Rheumatoid arthritis [None]

NARRATIVE: CASE EVENT DATE: 20170202
